FAERS Safety Report 8598495-5 (Version None)
Quarter: 2012Q3

REPORT INFORMATION
  Report Type: 
  Country: None (occurrence: None)
  Receive Date: 20120806
  Receipt Date: 20120806
  Transmission Date: 20120928
  Serious: Yes (Other)
  Sender: FDA-Public Use
  Company Number: None

PATIENT
  Sex: Female

DRUGS (1)
  1. SENSIPAR [Suspect]
     Indication: PARATHYROID DISORDER
     Dosage: 30MG QD ORAL
     Route: 048
     Dates: start: 20120628, end: 20120703

REACTIONS (3)
  - MUSCULOSKELETAL PAIN [None]
  - NECK PAIN [None]
  - HEADACHE [None]
